FAERS Safety Report 23384268 (Version 6)
Quarter: 2024Q4

REPORT INFORMATION
  Report Type: Spontaneous
  Country: US (occurrence: US)
  Receive Date: 20240109
  Receipt Date: 20241010
  Transmission Date: 20250115
  Serious: Yes (Hospitalization)
  Sender: BRISTOL MYERS SQUIBB
  Company Number: US-BRISTOL-MYERS SQUIBB COMPANY-2024-004438

PATIENT
  Age: 84 Year
  Sex: Female

DRUGS (44)
  1. REVLIMID [Suspect]
     Active Substance: LENALIDOMIDE
     Indication: Monoclonal gammopathy
     Dosage: TAKE 1 CAPSULE (15 MG) BY MOUTH ONCE DAILY FOR 14 DAYS ON THEN 7 DAYS OFF EACH 21 DAY CYCLE
     Route: 048
     Dates: start: 20230829
  2. REVLIMID [Suspect]
     Active Substance: LENALIDOMIDE
     Indication: Plasma cell myeloma
  3. ASMANEX HFA [Concomitant]
     Active Substance: MOMETASONE FUROATE
     Indication: Product used for unknown indication
     Dosage: AER
  4. ATORVASTATIN [Concomitant]
     Active Substance: ATORVASTATIN
     Indication: Product used for unknown indication
  5. COSOPT [Concomitant]
     Active Substance: DORZOLAMIDE HYDROCHLORIDE\TIMOLOL MALEATE
     Indication: Product used for unknown indication
     Dosage: 22.3-6.8
  6. CYMBALTA [Concomitant]
     Active Substance: DULOXETINE HYDROCHLORIDE
     Indication: Product used for unknown indication
  7. DEXAMETHASONE [Concomitant]
     Active Substance: DEXAMETHASONE
     Indication: Plasma cell myeloma
  8. LIDODERM [Concomitant]
     Active Substance: LIDOCAINE
     Indication: Product used for unknown indication
     Dosage: DIS 5%
  9. METOPROLOL SUCCINATE [Concomitant]
     Active Substance: METOPROLOL SUCCINATE
     Indication: Product used for unknown indication
     Dosage: 25MG ER
  10. MICARDIS [Concomitant]
     Active Substance: TELMISARTAN
     Indication: Product used for unknown indication
  11. MULTIVITAMIN [ASCORBIC ACID;BIOTIN;CALCIUM;CHOLINE BITARTRATE;CHROMIUM [Concomitant]
     Indication: Product used for unknown indication
     Dosage: TAB ADULT
  12. NEURONTIN [Concomitant]
     Active Substance: GABAPENTIN
     Indication: Product used for unknown indication
  13. NIFEDIPINE [Concomitant]
     Active Substance: NIFEDIPINE
     Indication: Product used for unknown indication
     Dosage: 60MG ER
  14. NIFEDIPINE [Concomitant]
     Active Substance: NIFEDIPINE
     Dosage: 60MG ER
  15. NIFEDIPINE [Concomitant]
     Active Substance: NIFEDIPINE
     Dosage: 60MG ER
  16. NIFEDIPINE [Concomitant]
     Active Substance: NIFEDIPINE
     Dosage: 60MG ER
  17. OMEPRAZOLE [Concomitant]
     Active Substance: OMEPRAZOLE
     Indication: Product used for unknown indication
  18. OMEPRAZOLE [Concomitant]
     Active Substance: OMEPRAZOLE
  19. OMEPRAZOLE [Concomitant]
     Active Substance: OMEPRAZOLE
  20. OMEPRAZOLE [Concomitant]
     Active Substance: OMEPRAZOLE
  21. PILOCARPINE [Concomitant]
     Active Substance: PILOCARPINE
     Indication: Product used for unknown indication
  22. PILOCARPINE [Concomitant]
     Active Substance: PILOCARPINE
  23. PILOCARPINE [Concomitant]
     Active Substance: PILOCARPINE
  24. PILOCARPINE [Concomitant]
     Active Substance: PILOCARPINE
  25. OXYCODONE [Concomitant]
     Active Substance: OXYCODONE
     Indication: Product used for unknown indication
  26. OXYCODONE [Concomitant]
     Active Substance: OXYCODONE
  27. OXYCODONE [Concomitant]
     Active Substance: OXYCODONE
  28. OXYCODONE [Concomitant]
     Active Substance: OXYCODONE
  29. FLUTICASONE PROPIONATE [Concomitant]
     Active Substance: FLUTICASONE PROPIONATE
     Indication: Product used for unknown indication
  30. FLUTICASONE PROPIONATE [Concomitant]
     Active Substance: FLUTICASONE PROPIONATE
  31. FLUTICASONE PROPIONATE [Concomitant]
     Active Substance: FLUTICASONE PROPIONATE
  32. FLUTICASONE PROPIONATE [Concomitant]
     Active Substance: FLUTICASONE PROPIONATE
  33. RESTASIS [Concomitant]
     Active Substance: CYCLOSPORINE
     Indication: Product used for unknown indication
     Dosage: EMU 0.05% OP
  34. RESTASIS [Concomitant]
     Active Substance: CYCLOSPORINE
     Dosage: EMU 0.05% OP
  35. RESTASIS [Concomitant]
     Active Substance: CYCLOSPORINE
     Dosage: EMU 0.05% OP
  36. RESTASIS [Concomitant]
     Active Substance: CYCLOSPORINE
     Dosage: EMU 0.05% OP
  37. DICLOFENAC [Concomitant]
     Active Substance: DICLOFENAC
     Indication: Product used for unknown indication
  38. DICLOFENAC [Concomitant]
     Active Substance: DICLOFENAC
  39. DICLOFENAC [Concomitant]
     Active Substance: DICLOFENAC
  40. DICLOFENAC [Concomitant]
     Active Substance: DICLOFENAC
  41. ZIOPTAN [Concomitant]
     Active Substance: TAFLUPROST
     Indication: Product used for unknown indication
     Dosage: DRO 0.0015%
  42. ZIOPTAN [Concomitant]
     Active Substance: TAFLUPROST
     Dosage: DRO 0.0015%
  43. ZIOPTAN [Concomitant]
     Active Substance: TAFLUPROST
     Dosage: DRO 0.0015%
  44. ZIOPTAN [Concomitant]
     Active Substance: TAFLUPROST
     Dosage: DRO 0.0015%

REACTIONS (12)
  - Abdominal pain [Unknown]
  - Nail disorder [Unknown]
  - Dry skin [Unknown]
  - Pruritus [Unknown]
  - Alopecia [Unknown]
  - Skin irritation [Unknown]
  - Stomatitis [Unknown]
  - Back pain [Unknown]
  - Joint swelling [Unknown]
  - Insomnia [Unknown]
  - Gingival pain [Unknown]
  - Gingival bleeding [Unknown]

NARRATIVE: CASE EVENT DATE: 20231225
